FAERS Safety Report 7448818-5 (Version None)
Quarter: 2011Q2

REPORT INFORMATION
  Report Type: 
  Country: None (occurrence: None)
  Receive Date: 20110429
  Receipt Date: 20100811
  Transmission Date: 20111010
  Serious: No
  Sender: FDA-Public Use
  Company Number: US-ASTRAZENECA-2010SE37879

PATIENT
  Sex: Female

DRUGS (2)
  1. NEXIUM [Suspect]
     Dosage: ONE PILL A DAY
     Route: 048
  2. NEXIUM [Suspect]
     Dosage: TWO PILLS A DAY
     Route: 048

REACTIONS (1)
  - THROAT IRRITATION [None]
